FAERS Safety Report 10267882 (Version 1)
Quarter: 2014Q2

REPORT INFORMATION
  Report Type: Spontaneous
  Country: GB (occurrence: GB)
  Receive Date: 20140630
  Receipt Date: 20140630
  Transmission Date: 20141212
  Serious: Yes (Disabling)
  Sender: FDA-Public Use
  Company Number: GB-TEVA-489849ISR

PATIENT
  Age: 68 Year
  Sex: Female

DRUGS (6)
  1. BISOPROLOL [Suspect]
     Indication: CARDIAC FAILURE
     Dates: start: 20140425, end: 20140609
  2. ATORVASTATIN [Concomitant]
  3. ASPIRIN [Concomitant]
  4. CANDESARTAN [Concomitant]
  5. FUROSEMIDE [Concomitant]
  6. SALBUTAMOL [Concomitant]

REACTIONS (2)
  - Dyspnoea [Recovered/Resolved]
  - Wheezing [Recovered/Resolved]
